FAERS Safety Report 18399903 (Version 2)
Quarter: 2020Q4

REPORT INFORMATION
  Report Type: Spontaneous
  Country: GB (occurrence: US)
  Receive Date: 20201019
  Receipt Date: 20201113
  Transmission Date: 20210114
  Serious: No
  Sender: FDA-Public Use
  Company Number: GB-ALXN-A202015189

PATIENT
  Age: 23 Year
  Sex: Male

DRUGS (1)
  1. ULTOMIRIS [Suspect]
     Active Substance: RAVULIZUMAB-CWVZ
     Indication: ATYPICAL HAEMOLYTIC URAEMIC SYNDROME
     Dosage: UNK, EVERY 8 WEEK
     Route: 065
     Dates: start: 202005

REACTIONS (2)
  - Malaise [Recovered/Resolved]
  - Fatigue [Recovered/Resolved]
